FAERS Safety Report 18888895 (Version 4)
Quarter: 2021Q3

REPORT INFORMATION
  Report Type: Spontaneous
  Country: US (occurrence: US)
  Receive Date: 20210213
  Receipt Date: 20210929
  Transmission Date: 20211014
  Serious: Yes (Disabling)
  Sender: FDA-Public Use
  Company Number: US-SA-2021SA045634

PATIENT
  Age: 58 Year
  Sex: Female

DRUGS (11)
  1. MULTIVITAMINS [VITAMINS NOS] [Concomitant]
     Active Substance: VITAMINS
  2. ERYTHROMYCIN. [Concomitant]
     Active Substance: ERYTHROMYCIN
  3. ATORVASTATIN [Concomitant]
     Active Substance: ATORVASTATIN
  4. AUBAGIO [Suspect]
     Active Substance: TERIFLUNOMIDE
     Indication: MULTIPLE SCLEROSIS
     Dosage: 14 MG, QD
     Route: 048
     Dates: start: 2016
  5. TURMERIC [CURCUMA LONGA] [Concomitant]
     Active Substance: HERBALS\TURMERIC
  6. GINGER ROOT [ZINGIBER OFFICINALE ROOT] [Concomitant]
  7. SODIUM CHLORIDE. [Concomitant]
     Active Substance: SODIUM CHLORIDE
  8. GLUCOSAMINE CHONDROITIN [CHONDROITIN SULFATE SODIUM;GELATINE HYDROLYSA [Concomitant]
  9. GARLIC (DEODORIZED) [Concomitant]
  10. MG [MAGNESIUM] [Concomitant]
     Active Substance: MAGNESIUM
  11. HEPARIN [Concomitant]
     Active Substance: HEPARIN SODIUM

REACTIONS (8)
  - Loss of personal independence in daily activities [Not Recovered/Not Resolved]
  - Bacterial infection [Unknown]
  - Urinary tract infection [Unknown]
  - Fatigue [Not Recovered/Not Resolved]
  - SARS-CoV-2 test positive [Unknown]
  - Depressed mood [Not Recovered/Not Resolved]
  - Unevaluable event [Unknown]
  - COVID-19 [Unknown]

NARRATIVE: CASE EVENT DATE: 2020
